FAERS Safety Report 6810870-5 (Version None)
Quarter: 2010Q2

REPORT INFORMATION
  Report Type: 
  Country: None (occurrence: None)
  Receive Date: 20100630
  Receipt Date: 20080701
  Transmission Date: 20101027
  Serious: No
  Sender: FDA-Public Use
  Company Number: US-PFIZER INC-2008043054

PATIENT
  Sex: Female
  Weight: 81.818 kg

DRUGS (2)
  1. ESTRING [Suspect]
     Indication: OESTROGEN THERAPY
     Dates: start: 20080201
  2. PREMARIN [Concomitant]

REACTIONS (3)
  - DRUG INEFFECTIVE [None]
  - HYPERHIDROSIS [None]
  - INCONTINENCE [None]
